FAERS Safety Report 4659074-5 (Version None)
Quarter: 2005Q2

REPORT INFORMATION
  Report Type: 
  Country: None (occurrence: None)
  Receive Date: 20050509
  Receipt Date: 20050429
  Transmission Date: 20051028
  Serious: Yes (Hospitalization)
  Sender: FDA-Public Use
  Company Number: 2005CG00761

PATIENT
  Age: 51 Year
  Sex: Female
  Weight: 65 kg

DRUGS (5)
  1. ARIMIDEX [Suspect]
     Indication: BREAST CANCER METASTATIC
     Dosage: 1 MG QD PO
     Route: 048
     Dates: start: 20000509
  2. SEROPRAM [Suspect]
     Dosage: 40 MG QD PO
     Route: 048
     Dates: start: 20040616
  3. DECAPEPTYL/SCH/ [Concomitant]
  4. URBANYL [Concomitant]
  5. LEXOMIL [Concomitant]

REACTIONS (4)
  - ABDOMINAL PAIN [None]
  - ENDOMETRIAL ATROPHY [None]
  - METRORRHAGIA [None]
  - UTERINE CERVIX ATROPHY [None]
